FAERS Safety Report 19274310 (Version 1)
Quarter: 2021Q2

REPORT INFORMATION
  Report Type: Spontaneous
  Country: US (occurrence: US)
  Receive Date: 20210519
  Receipt Date: 20210519
  Transmission Date: 20210717
  Serious: No
  Sender: FDA-Public Use
  Company Number: None

PATIENT
  Age: 68 Year
  Sex: Male
  Weight: 99 kg

DRUGS (1)
  1. CYCLOBENZAPRINE. [Suspect]
     Active Substance: CYCLOBENZAPRINE
     Indication: BACK PAIN
     Dosage: ?          QUANTITY:30 TABLET(S);?
     Route: 048
     Dates: start: 20210512, end: 20210513

REACTIONS (2)
  - Prostate infection [None]
  - Prostatic haemorrhage [None]
